FAERS Safety Report 9866805 (Version 2)
Quarter: 2014Q1

REPORT INFORMATION
  Report Type: Spontaneous
  Country: CH (occurrence: CH)
  Receive Date: 20140204
  Receipt Date: 20140213
  Transmission Date: 20141002
  Serious: Yes (Other)
  Sender: FDA-Public Use
  Company Number: CH-009507513-1401CHE014395

PATIENT
  Age: 43 Year
  Sex: Female

DRUGS (4)
  1. REMERON [Suspect]
     Dosage: 12 DF, ONCE
     Route: 048
     Dates: start: 20131227, end: 20131227
  2. ETHANOL [Suspect]
     Dosage: UNK
     Route: 048
     Dates: start: 20131227, end: 20131227
  3. ESCITALOPRAM [Suspect]
     Dosage: 5 DF, ONCE
     Route: 048
     Dates: start: 20131227, end: 20131227
  4. LORAZEPAM [Suspect]
     Dosage: 2 MG, UNK
     Route: 048
     Dates: start: 20131227, end: 20131227

REACTIONS (3)
  - Suicide attempt [Recovered/Resolved]
  - Agitation [Unknown]
  - Intentional overdose [Unknown]
